FAERS Safety Report 6553371-4 (Version None)
Quarter: 2010Q1

REPORT INFORMATION
  Report Type: 
  Country: None (occurrence: None)
  Receive Date: 20100127
  Receipt Date: 20091203
  Transmission Date: 20100710
  Serious: No
  Sender: FDA-Public Use
  Company Number: A0801092A

PATIENT
  Sex: Female

DRUGS (3)
  1. IMITREX [Suspect]
     Indication: MIGRAINE
     Dosage: 1INJ AS REQUIRED
     Route: 058
     Dates: start: 19950101
  2. GSK AUTOINJECTOR [Suspect]
     Indication: MIGRAINE
     Route: 058
  3. EXCEDRIN (MIGRAINE) [Concomitant]

REACTIONS (5)
  - DRUG INEFFECTIVE [None]
  - FEELING ABNORMAL [None]
  - MIGRAINE [None]
  - PALPITATIONS [None]
  - PRODUCT QUALITY ISSUE [None]
